FAERS Safety Report 8216607-X (Version None)
Quarter: 2012Q1

REPORT INFORMATION
  Report Type: 
  Country: None (occurrence: None)
  Receive Date: 20120307
  Receipt Date: 20120305
  Transmission Date: 20120608
  Serious: Yes (Other)
  Sender: FDA-Public Use
  Company Number: GGEL20110200018

PATIENT
  Age: 59 Year

DRUGS (2)
  1. PRAMIPEXOLE DIHYDROCHLORIDE [Suspect]
     Indication: PARKINSON'S DISEASE
     Dosage: 4.5 MILLIGRAM, 3 IN 1 D, ORAL USE
     Route: 048
     Dates: start: 20060101
  2. MADOPAR (BENSERAZIDE HYDROCHLORIDE, LEVODOPA) (BENSERAZIDE HYDROCHLORI [Suspect]
     Dosage: ORAL USE
     Route: 048
     Dates: start: 20070101

REACTIONS (1)
  - PATHOLOGICAL GAMBLING [None]
